FAERS Safety Report 21716860 (Version 1)
Quarter: 2022Q4

REPORT INFORMATION
  Report Type: Spontaneous
  Country: US (occurrence: US)
  Receive Date: 20221212
  Receipt Date: 20221212
  Transmission Date: 20230113
  Serious: No
  Sender: FDA-Public Use
  Company Number: US-Global Blood Therapeutics Inc-US-GBT-22-00914

PATIENT
  Sex: Male

DRUGS (2)
  1. OXBRYTA [Suspect]
     Active Substance: VOXELOTOR
     Indication: Sickle cell disease
     Route: 048
     Dates: start: 202110, end: 202111
  2. OXBRYTA [Suspect]
     Active Substance: VOXELOTOR
     Indication: Sickle cell disease
     Route: 048
     Dates: start: 202201

REACTIONS (8)
  - Haemoglobin increased [Unknown]
  - Blood bilirubin decreased [Unknown]
  - COVID-19 [Recovered/Resolved]
  - Priapism [Recovered/Resolved]
  - Sickle cell anaemia with crisis [Recovered/Resolved]
  - Abdominal pain upper [Recovered/Resolved]
  - Product dose omission issue [Unknown]
  - Off label use [Unknown]

NARRATIVE: CASE EVENT DATE: 20210101
